FAERS Safety Report 5014951-0 (Version None)
Quarter: 2006Q2

REPORT INFORMATION
  Report Type: 
  Country: None (occurrence: None)
  Receive Date: 20060414
  Receipt Date: 20060109
  Transmission Date: 20061013
  Serious: No
  Sender: FDA-Public Use
  Company Number: 2005SP003316

PATIENT
  Age: 46 Year
  Sex: Female
  Weight: 58.9676 kg

DRUGS (3)
  1. LUNESTA [Suspect]
     Indication: INSOMNIA
     Dosage: 2 MG;HS;ORAL
     Route: 048
     Dates: start: 20050901, end: 20050901
  2. DARVOCET [Concomitant]
  3. DEMEROL [Concomitant]

REACTIONS (3)
  - POOR QUALITY SLEEP [None]
  - RASH [None]
  - SOMNOLENCE [None]
